FAERS Safety Report 19055337 (Version 1)
Quarter: 2021Q1

REPORT INFORMATION
  Report Type: Report from Study
  Country: None (occurrence: US)
  Receive Date: 20210325
  Receipt Date: 20210325
  Transmission Date: 20210420
  Serious: Yes (Other)
  Sender: FDA-Public Use
  Company Number: US-ABBVIE-21K-163-3827096-00

PATIENT
  Sex: Female

DRUGS (1)
  1. VENCLEXTA [Suspect]
     Active Substance: VENETOCLAX
     Indication: CHRONIC LYMPHOCYTIC LEUKAEMIA
     Route: 048
     Dates: start: 20201231

REACTIONS (8)
  - Respiratory disorder [Not Recovered/Not Resolved]
  - Haemoglobin abnormal [Recovering/Resolving]
  - Splenomegaly [Not Recovered/Not Resolved]
  - Abdominal distension [Not Recovered/Not Resolved]
  - Red blood cell count abnormal [Recovering/Resolving]
  - Fatigue [Not Recovered/Not Resolved]
  - Oedema peripheral [Not Recovered/Not Resolved]
  - Intra-abdominal fluid collection [Not Recovered/Not Resolved]
